FAERS Safety Report 9064427 (Version 1)
Quarter: 2013Q1

REPORT INFORMATION
  Report Type: Report from Study
  Country: US (occurrence: US)
  Receive Date: 20130131
  Receipt Date: 20130131
  Transmission Date: 20140127
  Serious: No
  Sender: FDA-Public Use
  Company Number: US-ABBOTT-12P-163-1013785-00

PATIENT
  Age: 30 Year
  Sex: Male

DRUGS (5)
  1. HUMIRA [Suspect]
     Indication: CROHN^S DISEASE
     Dates: start: 20121025
  2. HUMIRA [Suspect]
     Dosage: DAY 15
     Dates: start: 20121108
  3. FLONASE [Concomitant]
     Indication: HYPERSENSITIVITY
     Dosage: 2 SPRAYS TWICE A DAY
  4. IMODIUM [Concomitant]
     Indication: DIARRHOEA
  5. IBUPROFEN ACTAVIS [Concomitant]
     Indication: BACK PAIN

REACTIONS (2)
  - Drug dose omission [Unknown]
  - Injection site haemorrhage [Recovered/Resolved]
